FAERS Safety Report 6283059-9 (Version None)
Quarter: 2009Q3

REPORT INFORMATION
  Report Type: 
  Country: None (occurrence: None)
  Receive Date: 20090724
  Receipt Date: 20090724
  Transmission Date: 20100115
  Serious: Yes (Other)
  Sender: FDA-Public Use
  Company Number: US-PFIZER INC-2009162328

PATIENT
  Sex: Female
  Weight: 72.109 kg

DRUGS (4)
  1. CHANTIX [Suspect]
     Indication: SMOKING CESSATION THERAPY
     Dosage: UNK
     Dates: start: 20060101
  2. ALL OTHER THERAPEUTIC PRODUCTS [Concomitant]
     Dosage: UNK
  3. ALL OTHER THERAPEUTIC PRODUCTS [Concomitant]
     Indication: BLOOD PRESSURE
     Dosage: UNK
  4. PRAVASTATIN [Concomitant]
     Dosage: UNK

REACTIONS (2)
  - DEPRESSION [None]
  - HOMICIDAL IDEATION [None]
